FAERS Safety Report 5022266-X (Version None)
Quarter: 2006Q2

REPORT INFORMATION
  Report Type: 
  Country: None (occurrence: None)
  Receive Date: 20060609
  Receipt Date: 20060331
  Transmission Date: 20061013
  Serious: Yes (Death, Life-Threatening, Other)
  Sender: FDA-Public Use
  Company Number: US-GLAXOSMITHKLINE-A0599922A

PATIENT
  Age: 48 Year
  Sex: Male
  Weight: 107.7 kg

DRUGS (10)
  1. ADVAIR DISKUS 100/50 [Suspect]
     Indication: ASTHMA
     Dosage: 1PUFF TWICE PER DAY
     Route: 055
     Dates: start: 20060320, end: 20060329
  2. SINGULAIR [Suspect]
     Indication: ASTHMA
     Dosage: 10MG AT NIGHT
     Route: 048
     Dates: start: 20060306, end: 20060329
  3. XOPENEX [Concomitant]
     Indication: ASTHMA
     Dosage: 1.25MG AS REQUIRED
     Route: 048
     Dates: start: 20060320, end: 20060329
  4. DEPO-MEDROL [Concomitant]
     Indication: ASTHMA
     Route: 030
     Dates: start: 20060320
  5. FLONASE [Concomitant]
     Dosage: 4SPR PER DAY
     Route: 045
     Dates: start: 20060306, end: 20060329
  6. DUONEB [Concomitant]
     Indication: ASTHMA
     Route: 055
     Dates: start: 20060306, end: 20060313
  7. DECADRON [Concomitant]
     Indication: ASTHMA
     Route: 030
     Dates: start: 20060320, end: 20060320
  8. ALBUTEROL SULFATE AUTOHALER [Concomitant]
     Dosage: 1PUFF AS REQUIRED
     Route: 055
     Dates: start: 20060306, end: 20060329
  9. DOXYCYCLINE [Concomitant]
     Indication: ASTHMA
     Dosage: 100MG TWICE PER DAY
     Route: 048
     Dates: start: 20060320, end: 20060329
  10. ROBITUSSIN DM [Concomitant]
     Indication: COUGH

REACTIONS (7)
  - ASTHMA [None]
  - CARDIAC DISORDER [None]
  - COUGH [None]
  - DYSPNOEA [None]
  - LUNG DISORDER [None]
  - NASOPHARYNGITIS [None]
  - PRODUCTIVE COUGH [None]
